FAERS Safety Report 8128668-7 (Version None)
Quarter: 2012Q1

REPORT INFORMATION
  Report Type: 
  Country: None (occurrence: None)
  Receive Date: 20120210
  Receipt Date: 20111222
  Transmission Date: 20120608
  Serious: No
  Sender: FDA-Public Use
  Company Number: US-BRISTOL-MYERS SQUIBB COMPANY-16312050

PATIENT
  Sex: Male

DRUGS (1)
  1. ORENCIA [Suspect]
     Dosage: FOR APPROX. 4.5 MONTHS,3-4 INFUSIONS,2 INJECTIONS,LAST INJECTION ON 15DEC2011
     Route: 058

REACTIONS (1)
  - DRUG INEFFECTIVE [None]
